FAERS Safety Report 5472754-7 (Version None)
Quarter: 2007Q4

REPORT INFORMATION
  Report Type: 
  Country: None (occurrence: None)
  Receive Date: 20071001
  Receipt Date: 20070921
  Transmission Date: 20080405
  Serious: Yes (Hospitalization)
  Sender: FDA-Public Use
  Company Number: FR-AVENTIS-200713000FR

PATIENT
  Age: 71 Year
  Sex: Male

DRUGS (22)
  1. PYOSTACINE [Suspect]
     Route: 048
     Dates: start: 20070514, end: 20070615
  2. LOVENOX [Suspect]
     Indication: PROPHYLAXIS
     Route: 058
     Dates: start: 20070516, end: 20070619
  3. VANCOMYCIN [Suspect]
     Route: 042
     Dates: start: 20070511, end: 20070616
  4. JOSIR [Suspect]
     Indication: URINARY RETENTION
     Route: 048
     Dates: start: 20070516, end: 20070618
  5. GAVISCON                           /01405501/ [Suspect]
     Indication: DRUG USE FOR UNKNOWN INDICATION
     Route: 048
     Dates: start: 20070508, end: 20070530
  6. RIFADIN [Concomitant]
     Dates: start: 20070501, end: 20070508
  7. OFLOCET                            /00731801/ [Concomitant]
     Dates: start: 20070501, end: 20070511
  8. IMOVANE [Concomitant]
     Indication: INSOMNIA
     Route: 048
     Dates: start: 20070508, end: 20070519
  9. TOPALGIC [Concomitant]
     Indication: DRUG USE FOR UNKNOWN INDICATION
     Dates: start: 20070508, end: 20070515
  10. INEXIUM [Concomitant]
     Indication: DRUG USE FOR UNKNOWN INDICATION
     Route: 048
     Dates: start: 20070506
  11. ATARAX                             /00058402/ [Concomitant]
     Indication: DRUG USE FOR UNKNOWN INDICATION
     Dates: start: 20070511, end: 20070516
  12. DUPHALAC                           /00163401/ [Concomitant]
     Indication: DRUG USE FOR UNKNOWN INDICATION
     Dates: start: 20070508, end: 20070515
  13. ACTISKENAN [Concomitant]
     Indication: DRUG USE FOR UNKNOWN INDICATION
     Dates: start: 20070508, end: 20070512
  14. OSMOTAN [Concomitant]
     Indication: DRUG USE FOR UNKNOWN INDICATION
     Dates: start: 20070507, end: 20070529
  15. ZOPHREN                            /00955301/ [Concomitant]
     Indication: DRUG USE FOR UNKNOWN INDICATION
     Dates: start: 20070507, end: 20070512
  16. PERFALGAN [Concomitant]
     Indication: DRUG USE FOR UNKNOWN INDICATION
     Dates: start: 20070507, end: 20070510
  17. KETAMINE HCL [Concomitant]
     Indication: DRUG USE FOR UNKNOWN INDICATION
     Dates: start: 20070508, end: 20070510
  18. ARIXTRA [Concomitant]
     Indication: PROPHYLAXIS
     Dates: start: 20070508, end: 20070515
  19. ACETAMINOPHEN [Concomitant]
     Indication: DRUG USE FOR UNKNOWN INDICATION
     Dates: start: 20070510, end: 20070513
  20. HYZAAR [Concomitant]
     Indication: DRUG USE FOR UNKNOWN INDICATION
     Route: 048
     Dates: end: 20070501
  21. HYZAAR [Concomitant]
     Route: 048
     Dates: start: 20070530, end: 20070618
  22. LIPANTHYL [Concomitant]
     Route: 048
     Dates: start: 20060101, end: 20070618

REACTIONS (12)
  - ASTHENIA [None]
  - DRUG RASH WITH EOSINOPHILIA AND SYSTEMIC SYMPTOMS [None]
  - EOSINOPHILIA [None]
  - FACE OEDEMA [None]
  - INFLAMMATION [None]
  - NEPHRITIS INTERSTITIAL [None]
  - ODYNOPHAGIA [None]
  - PRURITUS [None]
  - PURPURA [None]
  - PYREXIA [None]
  - RASH [None]
  - RASH ERYTHEMATOUS [None]
